FAERS Safety Report 25785026 (Version 3)
Quarter: 2025Q3

REPORT INFORMATION
  Report Type: Report from Study
  Country: CA (occurrence: CA)
  Receive Date: 20250910
  Receipt Date: 20250930
  Transmission Date: 20251021
  Serious: Yes (Other)
  Sender: TAKEDA
  Company Number: CA-TAKEDA-2025TUS078637

PATIENT
  Age: 76 Year
  Sex: Female

DRUGS (22)
  1. VEDOLIZUMAB [Suspect]
     Active Substance: VEDOLIZUMAB
     Indication: Colitis ulcerative
  2. VEDOLIZUMAB [Suspect]
     Active Substance: VEDOLIZUMAB
     Dosage: 300 MILLIGRAM, Q4WEEKS
     Dates: start: 20250517
  3. ALENDRONATE [Concomitant]
     Active Substance: ALENDRONATE SODIUM
  4. AMLODIPINE [Concomitant]
     Active Substance: AMLODIPINE BESYLATE
  5. ASPIRIN [Concomitant]
     Active Substance: ASPIRIN
  6. RAMIPRIL [Concomitant]
     Active Substance: RAMIPRIL
  7. XELJANZ [Concomitant]
     Active Substance: TOFACITINIB CITRATE
  8. ATORVASTATIN [Concomitant]
     Active Substance: ATORVASTATIN
  9. ENABLEX [Concomitant]
     Active Substance: DARIFENACIN HYDROBROMIDE
  10. TRAMADOL [Concomitant]
     Active Substance: TRAMADOL
  11. NAPROXEN [Concomitant]
     Active Substance: NAPROXEN
  12. FERROUS FUMARATE [Concomitant]
     Active Substance: FERROUS FUMARATE
  13. COENZYME Q10 [Concomitant]
     Active Substance: DIETARY SUPPLEMENT\UBIDECARENONE
  14. CALCIUM CARBONATE [Concomitant]
     Active Substance: CALCIUM CARBONATE
  15. VITAMIN B12 [Concomitant]
     Active Substance: CYANOCOBALAMIN
  16. FISH OIL\OMEGA-3 FATTY ACIDS [Concomitant]
     Active Substance: FISH OIL\OMEGA-3 FATTY ACIDS
  17. MINERALS\VITAMINS [Concomitant]
     Active Substance: MINERALS\VITAMINS
  18. VITAMIN D [Concomitant]
     Active Substance: VITAMIN D NOS
  19. PREDNISONE [Concomitant]
     Active Substance: PREDNISONE
  20. MAGNESIUM [Concomitant]
     Active Substance: MAGNESIUM
  21. NITROGLYCERIN [Concomitant]
     Active Substance: NITROGLYCERIN
  22. FUROSEMIDE [Concomitant]
     Active Substance: FUROSEMIDE

REACTIONS (1)
  - Uterine cancer [Not Recovered/Not Resolved]
